FAERS Safety Report 5775722-0 (Version None)
Quarter: 2008Q2

REPORT INFORMATION
  Report Type: 
  Country: None (occurrence: None)
  Receive Date: 20080612
  Receipt Date: 20080603
  Transmission Date: 20081010
  Serious: Yes (Other)
  Sender: FDA-Public Use
  Company Number: 920#8#2008-00010

PATIENT
  Age: 76 Year
  Sex: Female

DRUGS (4)
  1. NIFEDIPINE [Suspect]
     Indication: HYPERTENSION
  2. NIFEDIPINE [Suspect]
     Indication: MYOCARDIAL ISCHAEMIA
  3. ISOSORBIDE DINITRATE [Suspect]
     Indication: HYPERTENSION
  4. ISOSORBIDE DINITRATE [Suspect]
     Indication: MYOCARDIAL ISCHAEMIA

REACTIONS (7)
  - ABDOMINAL HERNIA [None]
  - BARRETT'S OESOPHAGUS [None]
  - DYSPEPSIA [None]
  - HIATUS HERNIA [None]
  - OESOPHAGEAL FISTULA [None]
  - OESOPHAGEAL ULCER [None]
  - REFLUX OESOPHAGITIS [None]
